FAERS Safety Report 7048111-9 (Version None)
Quarter: 2010Q4

REPORT INFORMATION
  Report Type: 
  Country: None (occurrence: None)
  Receive Date: 20101015
  Receipt Date: 20101005
  Transmission Date: 20110411
  Serious: Yes (Death)
  Sender: FDA-Public Use
  Company Number: GXKR2010US11239

PATIENT
  Age: 67 Year
  Sex: Male

DRUGS (13)
  1. AMIODARONE HCL [Suspect]
     Route: 065
  2. DIGOXIN [Concomitant]
     Route: 065
  3. THYROXIN [Concomitant]
     Dosage: 50 MG (INDUCTION DOSE)
     Route: 042
  4. THYROXIN [Concomitant]
     Dosage: 100 MG/DAY
  5. MILRINONE [Concomitant]
  6. ACETYLSALICYLIC ACID [Concomitant]
  7. PANTOPRAZOLE [Concomitant]
  8. LISINOPRIL [Concomitant]
  9. CLOPIDOGREL [Concomitant]
  10. SIMVASTATIN [Concomitant]
  11. ALLOPURINOL [Concomitant]
  12. LASIX [Concomitant]
  13. IRON [Concomitant]

REACTIONS (15)
  - ASTHENIA [None]
  - BRADYCARDIA [None]
  - CARDIAC FAILURE [None]
  - CONSTIPATION [None]
  - ENDOTRACHEAL INTUBATION [None]
  - HYPOTENSION [None]
  - HYPOTHERMIA [None]
  - HYPOTHYROIDISM [None]
  - LETHARGY [None]
  - MENTAL STATUS CHANGES [None]
  - MYXOEDEMA COMA [None]
  - OEDEMA [None]
  - PERICARDIAL EFFUSION [None]
  - PLEURAL EFFUSION [None]
  - PULMONARY OEDEMA [None]
